FAERS Safety Report 26023928 (Version 1)
Quarter: 2025Q4

REPORT INFORMATION
  Report Type: Spontaneous
  Country: US (occurrence: US)
  Receive Date: 20251111
  Receipt Date: 20251111
  Transmission Date: 20260117
  Serious: No
  Sender: TORRENT PHARMA INC.
  Company Number: US-TORRENT-00014586

PATIENT
  Sex: Female

DRUGS (1)
  1. ORMALVI [Suspect]
     Active Substance: DICHLORPHENAMIDE
     Indication: Paralysis
     Dosage: UNKNOWN
     Route: 065

REACTIONS (2)
  - Paraesthesia [Unknown]
  - Taste disorder [Unknown]
